FAERS Safety Report 13417137 (Version 6)
Quarter: 2017Q4

REPORT INFORMATION
  Report Type: Spontaneous
  Country: US (occurrence: US)
  Receive Date: 20170407
  Receipt Date: 20171109
  Transmission Date: 20180320
  Serious: Yes (Hospitalization, Other)
  Sender: FDA-Public Use
  Company Number: US-009507513-1704USA003144

PATIENT
  Sex: Female
  Weight: 81.63 kg

DRUGS (3)
  1. NUVARING [Suspect]
     Active Substance: ETHINYL ESTRADIOL\ETONOGESTREL
     Indication: CONTRACEPTION
     Dosage: 1 DF, UNK
     Route: 067
     Dates: start: 2007, end: 20150414
  2. ARMOUR THYROID [Concomitant]
     Active Substance: THYROID, PORCINE
     Indication: HYPOTHYROIDISM
     Dosage: UNK
     Route: 065
     Dates: start: 2005
  3. SYNTHROID [Concomitant]
     Active Substance: LEVOTHYROXINE SODIUM
     Indication: HYPOTHYROIDISM
     Dosage: 150 MG, QD
     Route: 065
     Dates: start: 2005

REACTIONS (15)
  - Joint surgery [Unknown]
  - Iron deficiency anaemia [Unknown]
  - Migraine [Unknown]
  - Pulmonary embolism [Recovered/Resolved]
  - Abortion spontaneous [Unknown]
  - Orthostatic hypotension [Recovered/Resolved]
  - Vaginal haemorrhage [Recovered/Resolved]
  - Headache [Unknown]
  - Idiopathic intracranial hypertension [Unknown]
  - Haemorrhagic anaemia [Recovered/Resolved]
  - Maternal exposure before pregnancy [Recovered/Resolved]
  - Depression [Not Recovered/Not Resolved]
  - Uterine leiomyoma [Unknown]
  - Tachycardia [Unknown]
  - Vitamin D deficiency [Unknown]

NARRATIVE: CASE EVENT DATE: 2012
